FAERS Safety Report 24946986 (Version 1)
Quarter: 2025Q1

REPORT INFORMATION
  Report Type: Spontaneous
  Country: US (occurrence: US)
  Receive Date: 20250210
  Receipt Date: 20250210
  Transmission Date: 20250409
  Serious: No
  Sender: Kenvue
  Company Number: US-KENVUE-20250110243

PATIENT

DRUGS (1)
  1. NEUTROGENA REVITALIZING LIP BALM BROAD SPECTRUM SPF 20 - PETAL GLOW 40 [Suspect]
     Active Substance: AVOBENZONE\HOMOSALATE\OCTOCRYLENE
     Indication: Product used for unknown indication
     Route: 061

REACTIONS (2)
  - Application site hypersensitivity [Unknown]
  - Application site paraesthesia [Unknown]
